FAERS Safety Report 8229396-X (Version None)
Quarter: 2012Q1

REPORT INFORMATION
  Report Type: 
  Country: None (occurrence: None)
  Receive Date: 20120322
  Receipt Date: 20120312
  Transmission Date: 20120608
  Serious: Yes (Other)
  Sender: FDA-Public Use
  Company Number: US-JNJFOC-20120306552

PATIENT
  Age: 83 Year
  Sex: Male
  Weight: 57.15 kg

DRUGS (3)
  1. ALL OTHER THERAPEUTIC PRODUCTS [Concomitant]
     Indication: PRODUCT USED FOR UNKNOWN INDICATION
     Route: 065
  2. TYLENOL [Suspect]
     Indication: MIGRAINE
     Dosage: 3-4 PILLS DAILY
     Route: 048
  3. TYLENOL [Suspect]
     Route: 048

REACTIONS (1)
  - VISUAL ACUITY REDUCED [None]
